FAERS Safety Report 6194121-3 (Version None)
Quarter: 2009Q2

REPORT INFORMATION
  Report Type: 
  Country: None (occurrence: None)
  Receive Date: 20090518
  Receipt Date: 20090511
  Transmission Date: 20091009
  Serious: Yes (Hospitalization, Other)
  Sender: FDA-Public Use
  Company Number: PHEH2007US14844

PATIENT
  Sex: Female
  Weight: 64.399 kg

DRUGS (21)
  1. AREDIA [Suspect]
     Indication: HYPERCALCAEMIA
     Dosage: 90 MG, QMO
     Route: 042
     Dates: start: 20000523, end: 20020401
  2. ZOMETA [Suspect]
     Dosage: 4 MG, QMO
     Route: 042
     Dates: start: 20020401
  3. DEXAMETHASONE 4MG TAB [Concomitant]
     Dosage: 40 MG, QD
     Dates: start: 20000701
  4. REVLIMID [Concomitant]
     Dosage: 25 MG, QD
  5. VELCADE [Concomitant]
  6. EVISTA [Concomitant]
     Indication: OSTEOPOROSIS
  7. PROCRIT                            /00909301/ [Concomitant]
     Dosage: 40000 U, QW
     Route: 058
     Dates: start: 20020901
  8. FOSAMAX [Concomitant]
     Indication: OSTEOPOROSIS
  9. IMIPRAMINE [Concomitant]
     Dosage: 25 MG, UNK
  10. PREMPRO [Concomitant]
     Dosage: 0.45/1.5 MG DAILY
  11. ARANESP [Concomitant]
     Dosage: 200 MCG
  12. THALOMID [Concomitant]
  13. COUMADIN [Concomitant]
     Dosage: 1 MG, QD
  14. KYTRIL [Concomitant]
     Dosage: 1 MG, UNK
  15. FERROUS SULFATE TAB [Concomitant]
     Indication: ANAEMIA
     Dosage: 325 MG, UNK
     Dates: start: 20000505
  16. NPH INSULIN [Concomitant]
  17. LOPRESSOR [Concomitant]
  18. MAG-OX [Concomitant]
  19. PREVACID [Concomitant]
  20. PERCOCET [Concomitant]
  21. BLOOD TRANSFUSION, AUXILIARY PRODUCTS [Concomitant]

REACTIONS (47)
  - ALOPECIA AREATA [None]
  - ARTHRALGIA [None]
  - ASTHENIA [None]
  - BONE MARROW TRANSPLANT [None]
  - BONE PAIN [None]
  - CHEST DISCOMFORT [None]
  - CHILLS [None]
  - CHOLELITHIASIS [None]
  - COUGH [None]
  - DEFORMITY [None]
  - DEPRESSION [None]
  - DIABETES MELLITUS [None]
  - DIABETIC KETOACIDOSIS [None]
  - DIARRHOEA [None]
  - DYSPEPSIA [None]
  - DYSPNOEA EXERTIONAL [None]
  - EPISTAXIS [None]
  - GINGIVAL ERYTHEMA [None]
  - HEPATOMEGALY [None]
  - HOT FLUSH [None]
  - INFECTION [None]
  - INFLAMMATION [None]
  - MUSCULOSKELETAL CHEST PAIN [None]
  - NECK PAIN [None]
  - NEUROPATHY PERIPHERAL [None]
  - OROPHARYNGEAL PAIN [None]
  - OSTEONECROSIS [None]
  - OSTEOPOROSIS [None]
  - PAIN [None]
  - PAIN IN JAW [None]
  - PAROXYSMAL ARRHYTHMIA [None]
  - PELVIC DISCOMFORT [None]
  - PELVIC PROLAPSE [None]
  - PULMONARY CONGESTION [None]
  - PYREXIA [None]
  - RASH [None]
  - RASH MACULAR [None]
  - RHINORRHOEA [None]
  - SOMNOLENCE [None]
  - STEM CELL TRANSPLANT [None]
  - STOMATITIS [None]
  - URINARY INCONTINENCE [None]
  - URINARY TRACT INFECTION [None]
  - VAGINAL OPERATION [None]
  - VISION BLURRED [None]
  - WEIGHT DECREASED [None]
  - WHEEZING [None]
